FAERS Safety Report 4751652-8 (Version None)
Quarter: 2005Q3

REPORT INFORMATION
  Report Type: 
  Country: None (occurrence: None)
  Receive Date: 20050822
  Receipt Date: 20050808
  Transmission Date: 20060218
  Serious: Yes (Other)
  Sender: FDA-Public Use
  Company Number: 2005094655

PATIENT
  Age: 46 Year
  Sex: Male

DRUGS (6)
  1. CAVERJECT [Suspect]
     Indication: ERECTILE DYSFUNCTION
     Dosage: 10 MCG (10 MCG, 1 IN 1 WK)
     Dates: start: 20050624, end: 20050701
  2. DIOVAN [Concomitant]
  3. AMLODIPINE [Concomitant]
  4. RIVOTRIL (CLONAZEPAM) [Concomitant]
  5. ANTIDEPRESSANTS (ANTIDEPRESSANTS) [Concomitant]
  6. CIALIS [Concomitant]

REACTIONS (4)
  - ERECTION INCREASED [None]
  - PENILE PAIN [None]
  - PENIS DEVIATION [None]
  - PROSTATIC OPERATION [None]
